FAERS Safety Report 5356195-9 (Version None)
Quarter: 2007Q2

REPORT INFORMATION
  Report Type: 
  Country: None (occurrence: None)
  Receive Date: 20070612
  Receipt Date: 20070531
  Transmission Date: 20071010
  Serious: Yes (Other)
  Sender: FDA-Public Use
  Company Number: CA-PFIZER INC-2007044601

PATIENT
  Age: 49 Year
  Sex: Female

DRUGS (2)
  1. NEURONTIN [Suspect]
     Route: 048
  2. TOPAMAX [Concomitant]
     Route: 048

REACTIONS (1)
  - ARRHYTHMIA [None]
